FAERS Safety Report 4437836-7 (Version None)
Quarter: 2004Q3

REPORT INFORMATION
  Report Type: 
  Country: None (occurrence: None)
  Receive Date: 20040831
  Receipt Date: 20040823
  Transmission Date: 20050211
  Serious: Yes (Other)
  Sender: FDA-Public Use
  Company Number: 200418432GDDC

PATIENT
  Sex: 0

DRUGS (1)
  1. KETEK [Suspect]
     Indication: PNEUMONIA
     Route: 048

REACTIONS (1)
  - ARRHYTHMIA [None]
